FAERS Safety Report 7615749-7 (Version None)
Quarter: 2011Q3

REPORT INFORMATION
  Report Type: 
  Country: None (occurrence: None)
  Receive Date: 20110711
  Receipt Date: 20110627
  Transmission Date: 20111222
  Serious: Yes (Hospitalization)
  Sender: FDA-Public Use
  Company Number: AUR-APL-2011-01603

PATIENT
  Age: 62 Year
  Sex: Male

DRUGS (3)
  1. TERAZOSIN HCL [Concomitant]
  2. LISINOPRIL [Concomitant]
  3. GABAPENTIN [Suspect]
     Indication: HYPERTENSION
     Dosage: 3 DOSAGE FORMS (1 DOSAGE FORMS,3 IN 1 D),ORAL
     Route: 048

REACTIONS (5)
  - BLOOD PRESSURE FLUCTUATION [None]
  - PRODUCT SUBSTITUTION ISSUE [None]
  - HYPOTENSION [None]
  - PRODUCT TASTE ABNORMAL [None]
  - PRODUCT ODOUR ABNORMAL [None]
